FAERS Safety Report 6092177-X (Version None)
Quarter: 2009Q1

REPORT INFORMATION
  Report Type: 
  Country: None (occurrence: None)
  Receive Date: 20090223
  Receipt Date: 20081215
  Transmission Date: 20090719
  Serious: Yes (Hospitalization)
  Sender: FDA-Public Use
  Company Number: 8040092

PATIENT
  Age: 29 Year
  Sex: Female
  Weight: 55.3 kg

DRUGS (3)
  1. CIMZIA [Suspect]
     Indication: CROHN'S DISEASE
     Dosage: 400 MG SC
     Route: 058
     Dates: start: 20081008
  2. PREDNISONE /00044702/ [Concomitant]
  3. AZATHIOPRINE [Concomitant]

REACTIONS (2)
  - ABSCESS INTESTINAL [None]
  - RASH [None]
